FAERS Safety Report 5897939-7 (Version None)
Quarter: 2008Q3

REPORT INFORMATION
  Report Type: 
  Country: None (occurrence: None)
  Receive Date: 20080925
  Receipt Date: 20080919
  Transmission Date: 20090109
  Serious: Yes (Hospitalization)
  Sender: FDA-Public Use
  Company Number: A0729678A

PATIENT
  Age: 45 Year
  Sex: Male

DRUGS (14)
  1. AVANDIA [Suspect]
     Dosage: 8MG PER DAY
     Route: 048
     Dates: start: 20010101, end: 20070301
  2. GLARGINE [Concomitant]
     Dosage: 80UNIT PER DAY
     Dates: start: 20020101
  3. GLUCOTROL [Concomitant]
     Dosage: 5MG FOUR TIMES PER DAY
     Dates: start: 20030101
  4. LOTREL [Concomitant]
     Dates: end: 20070301
  5. NORVASC [Concomitant]
     Dates: end: 20070301
  6. CHANTIX [Concomitant]
  7. ASPIRIN [Concomitant]
  8. VYTORIN [Concomitant]
  9. TRICOR [Concomitant]
  10. METAGLIP [Concomitant]
  11. LANTUS [Concomitant]
  12. CLONIDINE [Concomitant]
  13. XOPENEX [Concomitant]
  14. PULMICORT-100 [Concomitant]

REACTIONS (3)
  - ARTERIOSCLEROSIS [None]
  - CARDIAC FAILURE CONGESTIVE [None]
  - MYOCARDIAL INFARCTION [None]
